FAERS Safety Report 8791882 (Version 3)
Quarter: 2018Q3

REPORT INFORMATION
  Report Type: Report from Study
  Country: JP (occurrence: JP)
  Receive Date: 20120918
  Receipt Date: 20180829
  Transmission Date: 20181010
  Serious: Yes (Other)
  Sender: FDA-Public Use
  Company Number: PHHY2012JP080930

PATIENT
  Age: 55 Year
  Sex: Female
  Weight: 39 kg

DRUGS (3)
  1. HYALEIN [Concomitant]
     Active Substance: HYALURONATE SODIUM
     Indication: OPEN GLOBE INJURY
     Dosage: 150 UL, UNK
     Route: 065
  2. GILENYA [Suspect]
     Active Substance: FINGOLIMOD HYDROCHLORIDE
     Dosage: 0.5 MG, QD
     Route: 048
     Dates: start: 20120316, end: 20120827
  3. AMLODIPINE BESILATE [Concomitant]
     Active Substance: AMLODIPINE BESYLATE
     Indication: HYPERTENSION
     Dosage: 0.5 MG, UNK
     Route: 048

REACTIONS (2)
  - Macular oedema [Recovered/Resolved]
  - Retinal detachment [Unknown]

NARRATIVE: CASE EVENT DATE: 20120827
